FAERS Safety Report 23906583 (Version 1)
Quarter: 2024Q2

REPORT INFORMATION
  Report Type: Spontaneous
  Country: US (occurrence: US)
  Receive Date: 20240528
  Receipt Date: 20240528
  Transmission Date: 20240716
  Serious: Yes (Hospitalization, Other)
  Sender: FDA-Public Use
  Company Number: US-GLAXOSMITHKLINE-US2024064685

PATIENT

DRUGS (1)
  1. INCRUSE ELLIPTA [Suspect]
     Active Substance: UMECLIDINIUM BROMIDE
     Indication: Chronic obstructive pulmonary disease
     Dosage: UNK (INCRUSE ELLIPTA INHALER 30)
     Dates: start: 20240101

REACTIONS (3)
  - Oxygen saturation decreased [Unknown]
  - Blood glucose increased [Unknown]
  - Loss of consciousness [Unknown]
